FAERS Safety Report 5613831-7 (Version None)
Quarter: 2008Q1

REPORT INFORMATION
  Report Type: 
  Country: None (occurrence: None)
  Receive Date: 20080205
  Receipt Date: 20080201
  Transmission Date: 20080703
  Serious: Yes (Life-Threatening, Other)
  Sender: FDA-Public Use
  Company Number: DE-ASTRAZENECA-2007PK02466

PATIENT
  Age: 625 Month
  Sex: Female
  Weight: 68 kg

DRUGS (2)
  1. ARIMIDEX [Suspect]
     Indication: BREAST CANCER FEMALE
     Route: 048
     Dates: start: 20061001, end: 20071119
  2. ZOLADEX [Concomitant]
     Indication: BREAST CANCER FEMALE
     Route: 058

REACTIONS (10)
  - ABDOMINAL DISTENSION [None]
  - ANAPHYLACTOID REACTION [None]
  - CARDIOVASCULAR DISORDER [None]
  - DIARRHOEA [None]
  - DIZZINESS [None]
  - LARYNGEAL OEDEMA [None]
  - MALAISE [None]
  - NAUSEA [None]
  - RESPIRATORY DISORDER [None]
  - VOMITING [None]
